FAERS Safety Report 9769667 (Version 1)
Quarter: 2013Q4

REPORT INFORMATION
  Report Type: Spontaneous
  Country: US (occurrence: None)
  Receive Date: 20131217
  Receipt Date: 20131217
  Transmission Date: 20140711
  Serious: Yes (Life-Threatening, Hospitalization)
  Sender: FDA-Public Use
  Company Number: None

PATIENT
  Age: 76 Year
  Sex: Female
  Weight: 62 kg

DRUGS (4)
  1. XARALTO [Suspect]
     Route: 048
     Dates: start: 20131202, end: 20131206
  2. CELEBREX [Suspect]
     Dosage: 1,PO, QD
     Route: 048
     Dates: start: 20131202, end: 20131206
  3. RIVAROXABAN [Concomitant]
  4. CELECOXIB [Concomitant]

REACTIONS (1)
  - Gastrointestinal haemorrhage [None]
